FAERS Safety Report 4521600-4 (Version None)
Quarter: 2004Q4

REPORT INFORMATION
  Report Type: 
  Country: None (occurrence: None)
  Receive Date: 20041206
  Receipt Date: 20041124
  Transmission Date: 20050328
  Serious: Yes (Hospitalization)
  Sender: FDA-Public Use
  Company Number: 2004097829

PATIENT
  Age: 45 Year
  Sex: Female
  Weight: 63.5036 kg

DRUGS (2)
  1. VISINE A (PEHIRAMINE MALEATE, NAPHAZOLINE HYDROCHLORIDE) [Suspect]
     Indication: EYE ALLERGY
     Dosage: 2 GTS OS ONCE, 2 GTS OD
  2. ANTIHYPERTENSIVES (ANTIHYPERTENSIVES) [Concomitant]

REACTIONS (4)
  - HEADACHE [None]
  - INTRACRANIAL ANEURYSM [None]
  - MYDRIASIS [None]
  - VISION BLURRED [None]
